FAERS Safety Report 23080680 (Version 2)
Quarter: 2023Q4

REPORT INFORMATION
  Report Type: Spontaneous
  Country: HK (occurrence: HK)
  Receive Date: 20231018
  Receipt Date: 20231112
  Transmission Date: 20240109
  Serious: Yes (Hospitalization, Other)
  Sender: FDA-Public Use
  Company Number: HK-002147023-NVSC2023HK155276

PATIENT
  Age: 64 Year
  Sex: Male
  Weight: 53.4 kg

DRUGS (10)
  1. CARBOPLATIN [Suspect]
     Active Substance: CARBOPLATIN
     Dosage: 487 MG, Q3W INTRAVENOUS DRIP
     Route: 042
     Dates: start: 20230613, end: 20230613
  2. CARBOPLATIN [Suspect]
     Active Substance: CARBOPLATIN
     Indication: Small cell lung cancer limited stage
     Dosage: 517 MG, Q3W INTRAVENOUS DRIP
     Dates: start: 20230404, end: 20230404
  3. CARBOPLATIN [Suspect]
     Active Substance: CARBOPLATIN
     Dosage: 520 MG, Q3W INTRAVENOUS DRIP
     Route: 042
     Dates: start: 20230427, end: 20230427
  4. CARBOPLATIN [Suspect]
     Active Substance: CARBOPLATIN
     Dosage: 521 MG, Q3W INTRAVENOUS DRIP
     Route: 042
     Dates: start: 20230522, end: 20230522
  5. ETOPOSIDE [Suspect]
     Active Substance: ETOPOSIDE
     Dosage: 155 MG, Q3W INTRAVENOUS DRIP
     Route: 042
     Dates: start: 20230613, end: 20230615
  6. ETOPOSIDE [Suspect]
     Active Substance: ETOPOSIDE
     Dosage: 152 MG, Q3W INTRAVENOUS DRIP
     Route: 042
     Dates: start: 20230427, end: 20230429
  7. ETOPOSIDE [Suspect]
     Active Substance: ETOPOSIDE
     Dosage: 152 MG, Q3W INTRAVENOUS DRIP
     Route: 042
     Dates: start: 20230522, end: 20230524
  8. ETOPOSIDE [Suspect]
     Active Substance: ETOPOSIDE
     Indication: Small cell lung cancer limited stage
     Dosage: 153 MG, Q3W INTRAVENOUS DRIP
     Route: 042
     Dates: start: 20230404, end: 20230406
  9. FUROSEMIDE [Concomitant]
     Active Substance: FUROSEMIDE
     Dosage: 20 MG, QD
     Route: 040
     Dates: start: 20230616
  10. FUROSEMIDE [Concomitant]
     Active Substance: FUROSEMIDE
     Indication: Prophylaxis
     Dosage: 20 MG, QD
     Route: 042
     Dates: start: 20230616

REACTIONS (3)
  - Odynophagia [Unknown]
  - Febrile neutropenia [Unknown]
  - Anaemia [Recovered/Resolved]

NARRATIVE: CASE EVENT DATE: 20230612
